FAERS Safety Report 24339693 (Version 1)
Quarter: 2024Q3

REPORT INFORMATION
  Report Type: Spontaneous
  Country: AU (occurrence: AU)
  Receive Date: 20240919
  Receipt Date: 20240919
  Transmission Date: 20241017
  Serious: Yes (Death)
  Sender: SANDOZ
  Company Number: AU-AMGEN-AUSSP2024162774

PATIENT

DRUGS (6)
  1. PEGFILGRASTIM [Suspect]
     Active Substance: PEGFILGRASTIM
     Indication: Acute myeloid leukaemia
     Dosage: 6 MG INTERVAL:  2 WEEK
     Route: 065
  2. AMOXICILLIN [Concomitant]
     Active Substance: AMOXICILLIN
     Indication: Acute myeloid leukaemia
     Dosage: INTERVAL: 2 WEEK
     Route: 065
  3. CIPROFLOXACIN [Concomitant]
     Active Substance: CIPROFLOXACIN
     Indication: Acute myeloid leukaemia
     Dosage: INTERVAL: 2 WEEK
     Route: 065
  4. CYTARABINE [Concomitant]
     Active Substance: CYTARABINE
     Indication: Acute myeloid leukaemia
     Dosage: DOSE: 20 MILLIGRAM/SQUARE METRE; INTERVAL: 1 DAY
     Route: 058
  5. POSACONAZOLE [Concomitant]
     Active Substance: POSACONAZOLE
     Indication: Acute myeloid leukaemia
     Dosage: INTERVAL: 2 WEEK
     Route: 065
  6. THIOGUANINE [Concomitant]
     Active Substance: THIOGUANINE
     Indication: Acute myeloid leukaemia
     Dosage: DOSE: 40 MILLIGRAM/SQUARE METRE; INTERVAL: 1 DAY
     Route: 048

REACTIONS (1)
  - Adverse event [Fatal]
